FAERS Safety Report 8988994 (Version 1)
Quarter: 2012Q4

REPORT INFORMATION
  Report Type: Spontaneous
  Country: US (occurrence: None)
  Receive Date: 20121224
  Receipt Date: 20121224
  Transmission Date: 20130627
  Serious: No
  Sender: FDA-Public Use
  Company Number: None

PATIENT
  Sex: Male

DRUGS (1)
  1. ENBREL 50MG AMGEN [Suspect]
     Indication: PSORIATIC ARTHROPATHY
     Dosage: 50mg qw sq
     Route: 058
     Dates: start: 20120427, end: 201212

REACTIONS (1)
  - Squamous cell carcinoma [None]
